FAERS Safety Report 4910116-9 (Version None)
Quarter: 2006Q1

REPORT INFORMATION
  Report Type: 
  Country: None (occurrence: None)
  Receive Date: 20060209
  Receipt Date: 20060202
  Transmission Date: 20060701
  Serious: Yes (Other)
  Sender: FDA-Public Use
  Company Number: 163-C5013-06020048

PATIENT
  Age: 22 Year
  Sex: Female

DRUGS (5)
  1. REVLIMID [Suspect]
     Indication: PAIN
     Dosage: 10 MG, QD, ORAL
     Route: 048
     Dates: start: 20050811, end: 20060201
  2. CARBAMAZEPINE [Concomitant]
  3. LEVOTHYROXINE SODIUM [Concomitant]
  4. OXYCODONE [Concomitant]
  5. ACETAMINOPHEN [Concomitant]

REACTIONS (2)
  - DRUG EXPOSURE BEFORE PREGNANCY [None]
  - PREGNANCY TEST URINE POSITIVE [None]
